FAERS Safety Report 7073177-X (Version None)
Quarter: 2010Q4

REPORT INFORMATION
  Report Type: 
  Country: None (occurrence: None)
  Receive Date: 20101029
  Receipt Date: 20101021
  Transmission Date: 20110411
  Serious: Yes (Hospitalization)
  Sender: FDA-Public Use
  Company Number: US-SANOFI-AVENTIS-2010SA028610

PATIENT
  Age: 47 Year
  Sex: Female

DRUGS (8)
  1. LOVENOX [Suspect]
     Indication: DEEP VEIN THROMBOSIS
     Route: 065
     Dates: start: 20100101, end: 20100101
  2. BUMEX [Concomitant]
  3. TOPROL-XL [Concomitant]
  4. CELEXA [Concomitant]
  5. ZYVOX [Concomitant]
  6. AMARYL [Concomitant]
  7. FLEXERIL [Concomitant]
  8. ZOCOR [Concomitant]

REACTIONS (4)
  - CELLULITIS [None]
  - INJECTION SITE NECROSIS [None]
  - WOUND COMPLICATION [None]
  - WOUND DEHISCENCE [None]
